FAERS Safety Report 17399308 (Version 2)
Quarter: 2020Q1

REPORT INFORMATION
  Report Type: Spontaneous
  Country: IL (occurrence: IL)
  Receive Date: 20200211
  Receipt Date: 20200212
  Transmission Date: 20200409
  Serious: Yes (Death)
  Sender: FDA-Public Use
  Company Number: IL-ABBVIE-20K-082-3242324-00

PATIENT
  Age: 86 Year
  Sex: Female

DRUGS (3)
  1. MABTHERA [Concomitant]
     Active Substance: RITUXIMAB
     Indication: VASCULITIS
  2. DACOGEN [Suspect]
     Active Substance: DECITABINE
     Indication: PRODUCT USED FOR UNKNOWN INDICATION
     Route: 065
     Dates: start: 201910, end: 20200109
  3. VENCLEXTA [Suspect]
     Active Substance: VENETOCLAX
     Indication: ACUTE MYELOID LEUKAEMIA
     Route: 048
     Dates: start: 201910

REACTIONS (6)
  - Vasculitis [Unknown]
  - Hip fracture [Fatal]
  - Dyspnoea [Unknown]
  - Off label use [Unknown]
  - Fall [Fatal]
  - Blood creatinine abnormal [Unknown]
